FAERS Safety Report 8819750 (Version 1)
Quarter: 2012Q4

REPORT INFORMATION
  Report Type: 
  Country: US (occurrence: US)
  Receive Date: 20121001
  Receipt Date: 20121001
  Transmission Date: 20130627
  Serious: Yes (Other)
  Sender: FDA-Public Use
  Company Number: US-ROCHE-1129926

PATIENT
  Sex: Female

DRUGS (7)
  1. HERCEPTIN [Suspect]
     Indication: BREAST CANCER METASTATIC
     Dosage: loading 4 mg/kg and maintenance dose 2 mg/kg
     Route: 065
     Dates: start: 20000124
  2. HERCEPTIN [Suspect]
     Indication: MALIGNANT PLEURAL EFFUSION
     Route: 065
     Dates: start: 200004
  3. VANCOMYCIN [Concomitant]
  4. TAXOL [Concomitant]
     Route: 065
  5. LEVAQUIN [Concomitant]
     Route: 065
  6. PREDNISONE [Concomitant]
     Route: 065
  7. PREDNISONE [Concomitant]
     Route: 065

REACTIONS (8)
  - Metastases to bone [Unknown]
  - Lymphadenopathy [Unknown]
  - Fatigue [Unknown]
  - Neuralgia [Unknown]
  - Pyrexia [Unknown]
  - Abdominal pain [Unknown]
  - Diarrhoea [Unknown]
  - Pyrexia [Unknown]
